FAERS Safety Report 7860141-3 (Version None)
Quarter: 2011Q4

REPORT INFORMATION
  Report Type: 
  Country: None (occurrence: None)
  Receive Date: 20111027
  Receipt Date: 20111024
  Transmission Date: 20120403
  Serious: No
  Sender: FDA-Public Use
  Company Number: JP-BAYER-2011-091368

PATIENT
  Age: 78 Year
  Sex: Male
  Weight: 58 kg

DRUGS (10)
  1. CALBLOCK [Concomitant]
     Dosage: 8 MG, QD
     Route: 048
     Dates: start: 20110712
  2. MAIN HEART AMEL [Concomitant]
     Dosage: 2.5 MG, QD
     Route: 048
     Dates: start: 20110712
  3. OSPAIN [Concomitant]
     Dosage: DAILY DOSE 400 MG
     Route: 048
     Dates: start: 20110716
  4. NEXAVAR [Suspect]
     Dosage: DAILY DOSE 400 MG
     Route: 048
     Dates: start: 20110906, end: 20110914
  5. NEXAVAR [Suspect]
     Dosage: 200 MG, BID
     Route: 048
     Dates: start: 20110915, end: 20110917
  6. NEXAVAR [Suspect]
     Indication: HEPATIC NEOPLASM MALIGNANT
     Dosage: 200 MG, QD
     Route: 048
     Dates: start: 20110823, end: 20110905
  7. METHYCOBIDE [Concomitant]
     Dosage: DAILY DOSE 1500 ?G
     Route: 048
     Dates: start: 20110712
  8. LANSOPRAZOLE [Concomitant]
     Dosage: 15 MG, QD
     Route: 048
     Dates: start: 20110712
  9. NEXAVAR [Suspect]
     Dosage: 200 MG, QD
     Route: 048
     Dates: start: 20111012
  10. TRAMADOL HYDROCHLORIDE [Concomitant]
     Dosage: DAILY DOSE 100 MG
     Route: 048
     Dates: start: 20110825

REACTIONS (2)
  - PYREXIA [None]
  - C-REACTIVE PROTEIN INCREASED [None]
